FAERS Safety Report 8487872-9 (Version None)
Quarter: 2012Q3

REPORT INFORMATION
  Report Type: 
  Country: None (occurrence: None)
  Receive Date: 20120705
  Receipt Date: 20120626
  Transmission Date: 20120928
  Serious: Yes (Hospitalization)
  Sender: FDA-Public Use
  Company Number: US-US-EMD SERONO, INC.-7025786

PATIENT
  Sex: Female

DRUGS (1)
  1. REBIF [Suspect]
     Indication: MULTIPLE SCLEROSIS
     Route: 058
     Dates: start: 20040506

REACTIONS (4)
  - DEHYDRATION [None]
  - INJECTION SITE MASS [None]
  - BACTERIAL INFECTION [None]
  - MULTIPLE SCLEROSIS RELAPSE [None]
